FAERS Safety Report 6420714-1 (Version None)
Quarter: 2009Q4

REPORT INFORMATION
  Report Type: 
  Country: None (occurrence: None)
  Receive Date: 20091030
  Receipt Date: 20091021
  Transmission Date: 20100525
  Serious: Yes (Other)
  Sender: FDA-Public Use
  Company Number: US-BIOGENIDEC-2008BI035090

PATIENT
  Age: 45 Year
  Sex: Male

DRUGS (2)
  1. TYSABRI [Suspect]
     Indication: MULTIPLE SCLEROSIS
     Route: 042
     Dates: start: 20071228, end: 20081017
  2. TYSABRI [Suspect]
     Route: 042
     Dates: start: 20091009

REACTIONS (2)
  - PULMONARY SARCOIDOSIS [None]
  - SARCOIDOSIS [None]
